FAERS Safety Report 8843273 (Version 2)
Quarter: 2013Q1

REPORT INFORMATION
  Report Type: Spontaneous
  Country: US (occurrence: US)
  Receive Date: 20121016
  Receipt Date: 20130311
  Transmission Date: 20140127
  Serious: No
  Sender: FDA-Public Use
  Company Number: US-ASTRAZENECA-2012SE77614

PATIENT
  Age: 63 Year
  Sex: Female

DRUGS (1)
  1. LISINOPRIL HCT [Suspect]
     Route: 048
     Dates: start: 201203

REACTIONS (2)
  - Musculoskeletal discomfort [Unknown]
  - Cough [Unknown]
